FAERS Safety Report 22955014 (Version 2)
Quarter: 2023Q4

REPORT INFORMATION
  Report Type: Report from Study
  Country: US (occurrence: US)
  Receive Date: 20230918
  Receipt Date: 20231017
  Transmission Date: 20240110
  Serious: Yes (Life-Threatening, Hospitalization, Other)
  Sender: FDA-Public Use
  Company Number: US-PFIZER INC-PV202300155317

PATIENT
  Age: 62 Year
  Sex: Male
  Weight: 90.9 kg

DRUGS (9)
  1. GEMTUZUMAB OZOGAMICIN [Suspect]
     Active Substance: GEMTUZUMAB OZOGAMICIN
     Indication: Acute myeloid leukaemia
     Dosage: 4.5 MG, DAY 1
     Route: 042
     Dates: start: 20230717, end: 20230717
  2. GEMTUZUMAB OZOGAMICIN [Suspect]
     Active Substance: GEMTUZUMAB OZOGAMICIN
     Dosage: 4.5 MG, DAY 4
     Route: 042
     Dates: start: 20230720, end: 20230720
  3. GEMTUZUMAB OZOGAMICIN [Suspect]
     Active Substance: GEMTUZUMAB OZOGAMICIN
     Dosage: 4.5 MG, DAY 7
     Route: 042
     Dates: start: 20230723, end: 20230723
  4. GEMTUZUMAB OZOGAMICIN [Suspect]
     Active Substance: GEMTUZUMAB OZOGAMICIN
     Dosage: 4.5 MG, ONCE, DAY 1
     Route: 042
     Dates: start: 20230828, end: 20230828
  5. CYTARABINE [Suspect]
     Active Substance: CYTARABINE
     Indication: Acute myeloid leukaemia
     Dosage: 225MG PER DAY DAYS 1-7
     Route: 042
     Dates: start: 20230717, end: 20230725
  6. CYTARABINE [Suspect]
     Active Substance: CYTARABINE
     Dosage: 4320 MG, BID ON DAYS 1,3,5
     Route: 042
     Dates: start: 20230828, end: 20230901
  7. MIDOSTAURIN [Suspect]
     Active Substance: MIDOSTAURIN
     Indication: Acute myeloid leukaemia
     Dosage: 50 MG, BID DAYS 8-21
     Route: 048
     Dates: start: 20230725, end: 20230807
  8. MIDOSTAURIN [Suspect]
     Active Substance: MIDOSTAURIN
     Dosage: 50 MG, BID DAYS 8-21
     Route: 048
     Dates: start: 20230904, end: 20230908
  9. DAUNORUBICIN [Suspect]
     Active Substance: DAUNORUBICIN
     Indication: Acute myeloid leukaemia
     Dosage: 135 MG PER DAY, DAYS 1-3
     Route: 042
     Dates: start: 20230717, end: 20230719

REACTIONS (1)
  - Clostridium difficile colitis [Recovered/Resolved]

NARRATIVE: CASE EVENT DATE: 20230909
